FAERS Safety Report 15808732 (Version 3)
Quarter: 2019Q1

REPORT INFORMATION
  Report Type: Report from Study
  Country: CA (occurrence: CA)
  Receive Date: 20190110
  Receipt Date: 20190118
  Transmission Date: 20190417
  Serious: No
  Sender: FDA-Public Use
  Company Number: CA-ROCHE-2243323

PATIENT
  Sex: Female

DRUGS (4)
  1. OCREVUS [Suspect]
     Active Substance: OCRELIZUMAB
     Indication: RELAPSING-REMITTING MULTIPLE SCLEROSIS
     Dosage: 300 MG AT DAY 0 AND 14, THEN 600 MG EVERY 6 MONTH
     Route: 042
     Dates: start: 20171208
  2. PREVACID [Concomitant]
     Active Substance: LANSOPRAZOLE
     Dosage: FOR THE PAST 2 YEARS
     Route: 065
     Dates: start: 2016
  3. CONCERTA [Concomitant]
     Active Substance: METHYLPHENIDATE HYDROCHLORIDE
     Indication: FATIGUE
     Dosage: FOR CONCENTRATION
     Route: 065
     Dates: start: 201806
  4. ALESSE 28 [Concomitant]
     Active Substance: ETHINYL ESTRADIOL\LEVONORGESTREL
     Indication: ORAL CONTRACEPTION
     Dosage: 21 FOR 2-3 MONTHS SHE WAS TAKEN LOLO PREVIOUSLY
     Route: 065
     Dates: start: 2018

REACTIONS (3)
  - Headache [Not Recovered/Not Resolved]
  - Nasopharyngitis [Unknown]
  - Pain [Not Recovered/Not Resolved]
